FAERS Safety Report 7355791-7 (Version None)
Quarter: 2011Q1

REPORT INFORMATION
  Report Type: 
  Country: None (occurrence: None)
  Receive Date: 20110316
  Receipt Date: 20110308
  Transmission Date: 20110831
  Serious: Yes (Other)
  Sender: FDA-Public Use
  Company Number: US-US-EMD SERONO, INC.-7011041

PATIENT
  Sex: Female
  Weight: 66 kg

DRUGS (8)
  1. REBIF [Suspect]
     Indication: MULTIPLE SCLEROSIS
     Route: 058
     Dates: start: 20100623
  2. VIMPAT [Concomitant]
     Indication: EPILEPSY
     Dates: start: 20100410
  3. VIMPAT [Concomitant]
     Indication: CONVULSION
  4. SOMA [Concomitant]
  5. AMPYRA [Concomitant]
     Indication: MULTIPLE SCLEROSIS
     Route: 048
     Dates: start: 20100513
  6. PERCOCET [Concomitant]
     Indication: PREMEDICATION
  7. ASPIRIN [Concomitant]
  8. AMPYRA [Concomitant]
     Indication: BALANCE DISORDER

REACTIONS (4)
  - EPILEPSY [None]
  - PAIN [None]
  - STRESS [None]
  - NASOPHARYNGITIS [None]
